FAERS Safety Report 20963401 (Version 1)
Quarter: 2022Q2

REPORT INFORMATION
  Report Type: Spontaneous
  Country: BE (occurrence: BE)
  Receive Date: 20220615
  Receipt Date: 20220615
  Transmission Date: 20220721
  Serious: Yes (Other)
  Sender: FDA-Public Use
  Company Number: BE-BAXTER-2022BAX010499

PATIENT
  Sex: Male
  Weight: 77 kg

DRUGS (11)
  1. DOXORUBICIN [Suspect]
     Active Substance: DOXORUBICIN
     Indication: Follicular lymphoma
     Dosage: R CHOP : 8 CYCLI
     Route: 065
     Dates: start: 2013
  2. CYCLOPHOSPHAMIDE [Suspect]
     Active Substance: CYCLOPHOSPHAMIDE
     Indication: Follicular lymphoma
     Dosage: R CHOP : 8 CYCLI
     Route: 065
     Dates: start: 2013
  3. CISPLATIN [Suspect]
     Active Substance: CISPLATIN
     Indication: Follicular lymphoma
     Dosage: R DHAP
     Route: 065
     Dates: start: 201605
  4. DEXAMETHASONE [Suspect]
     Active Substance: DEXAMETHASONE
     Indication: Follicular lymphoma
     Dosage: R DHAP
     Route: 065
     Dates: start: 201605
  5. CYTARABINE [Suspect]
     Active Substance: CYTARABINE
     Indication: Follicular lymphoma
     Dosage: R DHAP
     Route: 065
     Dates: start: 201605
  6. RITUXIMAB [Suspect]
     Active Substance: RITUXIMAB
     Indication: Follicular lymphoma
     Dosage: R DHAP
     Route: 065
     Dates: start: 201605
  7. RITUXIMAB [Suspect]
     Active Substance: RITUXIMAB
     Dosage: R CHOP : 8 CYCLI
     Route: 065
     Dates: start: 2013
  8. VINCRISTINE [Suspect]
     Active Substance: VINCRISTINE
     Indication: Follicular lymphoma
     Dosage: R CHOP : 8 CYCLI
     Route: 065
     Dates: start: 2013
  9. BENDAMUSTINE [Suspect]
     Active Substance: BENDAMUSTINE
     Indication: B-cell lymphoma
     Dosage: CYCLIC; POWDER (EXCEPT DUSTING POWDER), INTRAVENOUS (NOT OTHERWISE SPECIFIED)
     Route: 042
     Dates: start: 201811
  10. OBINUTUZUMAB [Suspect]
     Active Substance: OBINUTUZUMAB
     Indication: B-cell lymphoma
     Dosage: GAZYVA + BENDAMUSTINE
     Route: 065
     Dates: start: 201811
  11. PREDNISOLONE [Suspect]
     Active Substance: PREDNISOLONE
     Indication: Follicular lymphoma
     Dosage: R CHOP : 8 CYCLI
     Route: 065
     Dates: start: 2013

REACTIONS (2)
  - B-cell lymphoma recurrent [Unknown]
  - Cytomegalovirus infection reactivation [Not Recovered/Not Resolved]

NARRATIVE: CASE EVENT DATE: 20150701
